FAERS Safety Report 5964899-X (Version None)
Quarter: 2008Q4

REPORT INFORMATION
  Report Type: 
  Country: None (occurrence: None)
  Receive Date: 20081124
  Receipt Date: 20081124
  Transmission Date: 20090506
  Serious: Yes (Other)
  Sender: FDA-Public Use
  Company Number: None

PATIENT
  Age: 81 Year
  Sex: Female
  Weight: 47.6277 kg

DRUGS (2)
  1. FOSAMAX [Suspect]
     Indication: OSTEOPOROSIS
     Dosage: 70MG WEEKLY PO
     Route: 048
     Dates: start: 20080830, end: 20081006
  2. MRI [Concomitant]

REACTIONS (6)
  - ANXIETY [None]
  - DIZZINESS [None]
  - HEAD INJURY [None]
  - HEADACHE [None]
  - HEART RATE IRREGULAR [None]
  - SYNCOPE [None]
